FAERS Safety Report 15081865 (Version 1)
Quarter: 2018Q2

REPORT INFORMATION
  Report Type: Spontaneous
  Country: ES (occurrence: ES)
  Receive Date: 20180628
  Receipt Date: 20180628
  Transmission Date: 20180711
  Serious: Yes (Hospitalization, Other)
  Sender: FDA-Public Use
  Company Number: ES-AUROBINDO-AUR-APL-2018-032733

PATIENT
  Age: 74 Year
  Sex: Male

DRUGS (3)
  1. ADIRO [Interacting]
     Active Substance: ASPIRIN
     Indication: PRODUCT USED FOR UNKNOWN INDICATION
     Dosage: FECHA FICTICIA DE INICIO DE TTO, MEDICATION ERROR
     Route: 048
     Dates: start: 2017
  2. OMEPRAZOLE. [Suspect]
     Active Substance: OMEPRAZOLE
     Indication: PRODUCT USED FOR UNKNOWN INDICATION
     Dosage: UNK, MEDICATION ERROR
     Route: 048
     Dates: start: 20180525, end: 20180601
  3. CLOPIDOGREL [Suspect]
     Active Substance: CLOPIDOGREL BISULFATE
     Indication: PRODUCT USED FOR UNKNOWN INDICATION
     Dosage: UNK, MEDICATION ERROR
     Route: 048
     Dates: start: 20180525, end: 20180601

REACTIONS (3)
  - Peptic ulcer haemorrhage [Recovered/Resolved]
  - Product substitution error [Recovered/Resolved]
  - Drug dose omission [Recovered/Resolved]

NARRATIVE: CASE EVENT DATE: 20180525
